FAERS Safety Report 9362879 (Version 2)
Quarter: 2013Q3

REPORT INFORMATION
  Report Type: Spontaneous
  Country: FR (occurrence: FR)
  Receive Date: 20130624
  Receipt Date: 20130815
  Transmission Date: 20140515
  Serious: Yes (Other)
  Sender: FDA-Public Use
  Company Number: FR-ROCHE-1239943

PATIENT
  Age: 64 Year
  Sex: Male
  Weight: 70 kg

DRUGS (8)
  1. COPEGUS [Suspect]
     Indication: HEPATITIS C
     Dosage: 200 MG
     Route: 048
     Dates: start: 20130304
  2. PEGASYS [Suspect]
     Indication: HEPATITIS C
     Route: 058
     Dates: start: 201303
  3. TEMERIT [Concomitant]
     Indication: HYPERTENSION
     Route: 048
  4. TEMERIT [Concomitant]
     Indication: CORONARY ANGIOPLASTY
  5. PRAVASTATINE [Concomitant]
  6. KARDEGIC [Concomitant]
     Indication: CORONARY ANGIOPLASTY
     Route: 048
     Dates: start: 201105
  7. PARACETAMOL [Concomitant]
  8. INEXIUM [Concomitant]
     Dosage: 20 MG
     Route: 048

REACTIONS (4)
  - Coronary artery disease [Unknown]
  - Tendonitis [Not Recovered/Not Resolved]
  - Hypoaesthesia [Not Recovered/Not Resolved]
  - Muscular weakness [Not Recovered/Not Resolved]
